FAERS Safety Report 4511371-X (Version None)
Quarter: 2004Q4

REPORT INFORMATION
  Report Type: 
  Country: None (occurrence: None)
  Receive Date: 20041123
  Receipt Date: 20041123
  Transmission Date: 20050328
  Serious: Yes (Life-Threatening)
  Sender: FDA-Public Use
  Company Number: None

PATIENT
  Age: 83 Year
  Sex: Male

DRUGS (12)
  1. GATIFLOXACIN [Suspect]
     Indication: PNEUMONIA ASPIRATION
     Dosage: 400 MG DAILY ORAL
     Route: 048
     Dates: start: 20041109, end: 20041116
  2. OLANZAPINE [Concomitant]
  3. DONEPEZIL HCL [Concomitant]
  4. RABEPRAZOLE SODIUM [Concomitant]
  5. THIAMINE HCL [Concomitant]
  6. VITAMIN C [Concomitant]
  7. MUTLIVIT/MINERALS [Concomitant]
  8. ASPIRIN [Concomitant]
  9. PIOGLITAZONE HCL [Concomitant]
  10. GLIPIZIDE [Concomitant]
  11. TEMAZEPAM [Concomitant]
  12. ACETAMINOPHEN [Concomitant]

REACTIONS (3)
  - BLOOD GLUCOSE DECREASED [None]
  - COMA [None]
  - HYPERHIDROSIS [None]
